FAERS Safety Report 6593798-8 (Version None)
Quarter: 2010Q1

REPORT INFORMATION
  Report Type: 
  Country: None (occurrence: None)
  Receive Date: 20100222
  Receipt Date: 20100216
  Transmission Date: 20100710
  Serious: Yes (Other)
  Sender: FDA-Public Use
  Company Number: US-PFIZER INC-2010020795

PATIENT
  Sex: Female
  Weight: 61.234 kg

DRUGS (3)
  1. CELEBREX [Suspect]
     Indication: BACK DISORDER
     Dosage: 200 MG, 1X/DAY
     Route: 048
     Dates: end: 20100216
  2. MOBIC [Suspect]
     Indication: BACK DISORDER
     Dosage: 15 MG, 1X/DAY
     Route: 048
     Dates: start: 20100207, end: 20100207
  3. ACETYLSALICYLIC ACID [Concomitant]

REACTIONS (5)
  - BACK INJURY [None]
  - DYSSTASIA [None]
  - INSOMNIA [None]
  - MUSCLE SPASMS [None]
  - PAIN [None]
